FAERS Safety Report 10176195 (Version 2)
Quarter: 2014Q2

REPORT INFORMATION
  Report Type: Spontaneous
  Country: US (occurrence: US)
  Receive Date: 20140516
  Receipt Date: 20140603
  Transmission Date: 20141212
  Serious: No
  Sender: FDA-Public Use
  Company Number: US-009507513-1405USA004281

PATIENT
  Sex: Female
  Weight: 81.63 kg

DRUGS (3)
  1. OXYTROL FOR WOMEN [Suspect]
     Indication: MICTURITION URGENCY
     Dosage: 1 PATCH, EVERY 4 DAYS/3 NIGHTS
     Route: 062
     Dates: start: 201311, end: 201312
  2. OXYTROL FOR WOMEN [Suspect]
     Indication: POLLAKIURIA
  3. GARLIC [Concomitant]
     Route: 048

REACTIONS (1)
  - Drug ineffective [Unknown]
